APPROVED DRUG PRODUCT: ALPRAZOLAM
Active Ingredient: ALPRAZOLAM
Strength: 2MG
Dosage Form/Route: TABLET, EXTENDED RELEASE;ORAL
Application: A077996 | Product #003
Applicant: IMPAX LABORATORIES INC
Approved: Jan 31, 2007 | RLD: No | RS: No | Type: DISCN